FAERS Safety Report 12543706 (Version 1)
Quarter: 2016Q3

REPORT INFORMATION
  Report Type: Spontaneous
  Country: US (occurrence: None)
  Receive Date: 20160708
  Receipt Date: 20160708
  Transmission Date: 20161109
  Serious: Yes (Life-Threatening)
  Sender: FDA-Public Use
  Company Number: None

PATIENT
  Age: 43 Year
  Sex: Female
  Weight: 54.43 kg

DRUGS (4)
  1. PRISTIQ EXTENDED-RELEASE [Suspect]
     Active Substance: DESVENLAFAXINE SUCCINATE
     Indication: ADJUSTMENT DISORDER WITH DEPRESSED MOOD
     Dosage: 30 TABLET (S) IN THE MORNING TAKEN BY MOUTH
     Route: 048
     Dates: start: 20130501, end: 20160630
  2. FISH OIL [Concomitant]
     Active Substance: FISH OIL
  3. IRON SUPPLEMENTS [Concomitant]
     Active Substance: IRON
  4. VITAMIN B12 [Concomitant]
     Active Substance: CYANOCOBALAMIN

REACTIONS (10)
  - Nausea [None]
  - Gastrointestinal disorder [None]
  - Weight decreased [None]
  - Paraesthesia [None]
  - Fall [None]
  - Suicidal ideation [None]
  - Drug withdrawal syndrome [None]
  - Impaired driving ability [None]
  - Impaired work ability [None]
  - Dizziness [None]
